FAERS Safety Report 5916870-1 (Version None)
Quarter: 2008Q3

REPORT INFORMATION
  Report Type: 
  Country: None (occurrence: None)
  Receive Date: 20080909
  Receipt Date: 20080102
  Transmission Date: 20090109
  Serious: Yes (Hospitalization)
  Sender: FDA-Public Use
  Company Number: 163-20785-08010109 (0)

PATIENT
  Age: 68 Year
  Sex: Female
  Weight: 74.5 kg

DRUGS (17)
  1. THALOMID [Suspect]
     Indication: MULTIPLE MYELOMA
     Dosage: 200-100MG, EVERY NIGHT, ORAL
     Route: 048
     Dates: start: 20050720, end: 20071111
  2. DEXAMETHASONE TAB [Suspect]
     Indication: MULTIPLE MYELOMA
     Dosage: 40 MG ; 20 MG, DAYS 1-4, 8-11
     Dates: start: 20050723, end: 20071111
  3. VELCADE [Suspect]
     Indication: MULTIPLE MYELOMA
     Dosage: 1 FEG/MS
     Dates: start: 20050720, end: 20070823
  4. ACYCLOVIR [Concomitant]
  5. CALCIUM + D (CALCITE D) (TABLETS) [Concomitant]
  6. VITAMIN E (TOCOPHEROL) (CAPSULES) [Concomitant]
  7. RANITIDINE HCL (RANITIDINE HYDROCHLORIDE) (TABLETS) [Concomitant]
  8. XANAX [Concomitant]
  9. AMBIEN [Concomitant]
  10. IMODIUM (LOPERAMIDE HYDROCHLORIDE) (2 MILLIGRAM, CAPSULES) [Concomitant]
  11. LEXAPRO [Concomitant]
  12. VITAMIN B6 (PYRIDOXINE HYDROCHLORIDE) (TABLETS) [Concomitant]
  13. BACTRIM DS [Concomitant]
  14. ASPIRIN [Concomitant]
  15. AREDIA (PAMIDRONATE DISODIUM) (SOLUTION) [Concomitant]
  16. LISINOPRIL [Concomitant]
  17. KEFLEX [Concomitant]

REACTIONS (1)
  - DEEP VEIN THROMBOSIS [None]
